FAERS Safety Report 5815042-9 (Version None)
Quarter: 2008Q3

REPORT INFORMATION
  Report Type: 
  Country: None (occurrence: None)
  Receive Date: 20080718
  Receipt Date: 20080715
  Transmission Date: 20090109
  Serious: Yes (Hospitalization)
  Sender: FDA-Public Use
  Company Number: B0529310A

PATIENT
  Age: 79 Year
  Sex: Male

DRUGS (1)
  1. CLAMOXYL [Suspect]
     Indication: BRONCHITIS
     Dosage: 2CAP THREE TIMES PER DAY
     Route: 048
     Dates: start: 20080526, end: 20080528

REACTIONS (5)
  - ERYTHEMA [None]
  - LEUKOCYTOSIS [None]
  - RASH PAPULAR [None]
  - SKIN LESION [None]
  - TOXIC SKIN ERUPTION [None]
